FAERS Safety Report 14126342 (Version 2)
Quarter: 2018Q2

REPORT INFORMATION
  Report Type: Not Available
  Country: US (occurrence: US)
  Receive Date: 20171025
  Receipt Date: 20180605
  Transmission Date: 20180711
  Serious: No
  Sender: FDA-Public Use
  Company Number: US-NEUROCRINE BIOSCIENCES INC.-2017NBI01087

PATIENT
  Age: 67 Year
  Sex: Female

DRUGS (7)
  1. RISPERDAL [Concomitant]
     Active Substance: RISPERIDONE
     Dosage: 1 MG AND 3 MG DAILY IN THE MORNING,   2 MG DAILY NIGHTTIME
     Route: 048
     Dates: start: 20170607
  2. INGREZZA [Suspect]
     Active Substance: VALBENAZINE
     Indication: TARDIVE DYSKINESIA
     Route: 048
     Dates: start: 20170915, end: 20170921
  3. SEROQUEL [Concomitant]
     Active Substance: QUETIAPINE FUMARATE
     Route: 048
     Dates: start: 20170819
  4. EFFEXOR XR [Concomitant]
     Active Substance: VENLAFAXINE HYDROCHLORIDE
     Dosage: 70 MG DAILY IN THE MORNING
     Route: 048
     Dates: start: 20170607
  5. PROPRANOLOL [Concomitant]
     Active Substance: PROPRANOLOL HYDROCHLORIDE
     Route: 048
     Dates: start: 20171229
  6. INGREZZA [Suspect]
     Active Substance: VALBENAZINE
     Route: 048
     Dates: start: 20170925, end: 2017
  7. REMERON [Concomitant]
     Active Substance: MIRTAZAPINE
     Dosage: 30 MG DAILY NIGHTTIME

REACTIONS (2)
  - Drug ineffective [None]
  - Rash generalised [Recovered/Resolved]

NARRATIVE: CASE EVENT DATE: 20170803
